FAERS Safety Report 20701945 (Version 1)
Quarter: 2022Q2

REPORT INFORMATION
  Report Type: Spontaneous
  Country: US (occurrence: None)
  Receive Date: 20220412
  Receipt Date: 20220412
  Transmission Date: 20220720
  Serious: Yes (Hospitalization)
  Sender: FDA-Public Use
  Company Number: None

PATIENT
  Sex: Female

DRUGS (1)
  1. TOBRAMYCIN [Suspect]
     Active Substance: TOBRAMYCIN
     Indication: Respiratory disorder
     Dosage: 300/5 MG/ML??INHALE 1 VIAL VIA NEBULIZER TWICE DAILY FOR 28 DAYHS ON AND 28 DAYS OFF ?
     Route: 055
     Dates: start: 20210223

REACTIONS (1)
  - Hospitalisation [None]
